FAERS Safety Report 21200047 (Version 1)
Quarter: 2022Q3

REPORT INFORMATION
  Report Type: Spontaneous
  Country: US (occurrence: None)
  Receive Date: 20220810
  Receipt Date: 20220810
  Transmission Date: 20221027
  Serious: Yes (unspecified)
  Sender: FDA-Public Use
  Company Number: None

PATIENT
  Age: 54 Year
  Sex: Female
  Weight: 72 kg

DRUGS (18)
  1. SPIRIVA HANDIHALER [Suspect]
     Active Substance: TIOTROPIUM BROMIDE MONOHYDRATE
     Indication: Asthma
     Dosage: OTHER QUANTITY : 1 CAPSULE(S);?FREQUENCY : AT BEDTIME;?
     Route: 055
     Dates: start: 20220802, end: 20220808
  2. ADVAIR HFA [Concomitant]
     Active Substance: FLUTICASONE PROPIONATE\SALMETEROL XINAFOATE
  3. ALBUTEROL [Concomitant]
     Active Substance: ALBUTEROL
  4. DESLORATADINE [Concomitant]
     Active Substance: DESLORATADINE
  5. SINGULAIR [Concomitant]
     Active Substance: MONTELUKAST SODIUM
  6. CLONIIDINE [Concomitant]
  7. PROZAC [Concomitant]
     Active Substance: FLUOXETINE HYDROCHLORIDE
  8. LAMOTRGINE [Concomitant]
  9. SYNTHROID [Concomitant]
     Active Substance: LEVOTHYROXINE SODIUM
  10. CLONAZEPAM [Concomitant]
     Active Substance: CLONAZEPAM
  11. OXYCODOEN [Concomitant]
  12. SULINDAC [Concomitant]
     Active Substance: SULINDAC
  13. FLEXERIL [Concomitant]
     Active Substance: CYCLOBENZAPRINE HYDROCHLORIDE
  14. IBUOROFIN [Concomitant]
  15. VOLTAREN [Concomitant]
     Active Substance: DICLOFENAC SODIUM
  16. VITAMIN D NOS [Concomitant]
     Active Substance: VITAMIN D NOS
  17. NUTRI-KLENS [Concomitant]
  18. DR GUNDRY PRPLANT COMPLETE [Concomitant]

REACTIONS (6)
  - Laryngitis [None]
  - Gingival bleeding [None]
  - Headache [None]
  - Gingivitis [None]
  - Gingival pruritus [None]
  - Pain in jaw [None]

NARRATIVE: CASE EVENT DATE: 20220808
